FAERS Safety Report 7913753-2 (Version None)
Quarter: 2011Q4

REPORT INFORMATION
  Report Type: 
  Country: None (occurrence: None)
  Receive Date: 20111115
  Receipt Date: 20111109
  Transmission Date: 20120403
  Serious: Yes (Hospitalization, Other)
  Sender: FDA-Public Use
  Company Number: US-BRISTOL-MYERS SQUIBB COMPANY-16185712

PATIENT
  Age: 51 Year
  Sex: Male
  Weight: 103 kg

DRUGS (2)
  1. CISPLATIN [Suspect]
     Indication: HEAD AND NECK CANCER
     Dosage: LAST DOSE ON 13OCT08
     Dates: start: 20081006
  2. ERBITUX [Suspect]
     Indication: HEAD AND NECK CANCER
     Dosage: LAST DOSE ON 05NOV08
     Dates: start: 20081006

REACTIONS (6)
  - DECREASED APPETITE [None]
  - NAUSEA [None]
  - CONSTIPATION [None]
  - DYSPHAGIA [None]
  - DEHYDRATION [None]
  - PAIN [None]
